FAERS Safety Report 5083620-3 (Version None)
Quarter: 2006Q3

REPORT INFORMATION
  Report Type: 
  Country: None (occurrence: None)
  Receive Date: 20060818
  Receipt Date: 20060804
  Transmission Date: 20061208
  Serious: Yes (Hospitalization)
  Sender: FDA-Public Use
  Company Number: FR-JNJFOC-20060803400

PATIENT
  Age: 63 Year
  Sex: Female

DRUGS (7)
  1. ZALDIAR [Suspect]
     Indication: SPINAL CORD COMPRESSION
     Route: 048
  2. LASILIX [Suspect]
     Indication: HYPERTENSION
     Route: 048
  3. SERESTA [Suspect]
     Indication: DEPRESSION
     Route: 048
  4. SOTALEX [Suspect]
     Indication: HYPERTENSION
     Route: 048
  5. ICAZ [Suspect]
     Indication: HYPERTENSION
  6. ACTONEL [Suspect]
     Indication: OSTEOPOROSIS
     Route: 048
  7. STILNOX [Concomitant]
     Indication: DEPRESSION

REACTIONS (2)
  - CONVULSION [None]
  - HYPONATRAEMIA [None]
